FAERS Safety Report 10477605 (Version 1)
Quarter: 2014Q3

REPORT INFORMATION
  Report Type: Spontaneous
  Country: SE (occurrence: SE)
  Receive Date: 20140926
  Receipt Date: 20140926
  Transmission Date: 20150326
  Serious: Yes (Other)
  Sender: FDA-Public Use
  Company Number: SE-ROCHE-1465708

PATIENT
  Age: 62 Year
  Sex: Male

DRUGS (8)
  1. MABTHERA [Suspect]
     Active Substance: RITUXIMAB
     Indication: RHEUMATOID ARTHRITIS
     Route: 065
     Dates: start: 20140130
  2. PREDNISOLONE. [Concomitant]
     Active Substance: PREDNISOLONE
  3. FOLACIN [Concomitant]
     Active Substance: FOLIC ACID
     Route: 065
  4. ALVEDON [Concomitant]
     Active Substance: ACETAMINOPHEN
     Route: 065
  5. ROACTEMRA [Suspect]
     Active Substance: TOCILIZUMAB
     Indication: RHEUMATOID ARTHRITIS
     Route: 065
     Dates: start: 20140502, end: 20140701
  6. LASIX [Concomitant]
     Active Substance: FUROSEMIDE
     Route: 065
  7. KALCIPOS-D FORTE [Concomitant]
     Route: 065
  8. OMEPRAZOLE. [Concomitant]
     Active Substance: OMEPRAZOLE

REACTIONS (3)
  - Polyneuropathy [Not Recovered/Not Resolved]
  - Drug ineffective [Unknown]
  - Liver function test abnormal [Not Recovered/Not Resolved]

NARRATIVE: CASE EVENT DATE: 201407
